FAERS Safety Report 5771436-1 (Version None)
Quarter: 2008Q2

REPORT INFORMATION
  Report Type: 
  Country: None (occurrence: None)
  Receive Date: 20080613
  Receipt Date: 20080604
  Transmission Date: 20081010
  Serious: Yes (Other)
  Sender: FDA-Public Use
  Company Number: PHHY2008JP09878

PATIENT
  Age: 61 Year
  Sex: Male

DRUGS (3)
  1. CYCLOSPORINE [Suspect]
     Route: 065
  2. TACROLIMUS [Concomitant]
  3. PREDNISOLONE [Concomitant]
     Dosage: 1 MG/KG

REACTIONS (3)
  - HEPATIC FUNCTION ABNORMAL [None]
  - PNEUMATOSIS INTESTINALIS [None]
  - PNEUMOMEDIASTINUM [None]
